FAERS Safety Report 22263810 (Version 2)
Quarter: 2023Q2

REPORT INFORMATION
  Report Type: Spontaneous
  Country: DK (occurrence: DK)
  Receive Date: 20230428
  Receipt Date: 20230515
  Transmission Date: 20230721
  Serious: Yes (Hospitalization, Other)
  Sender: FDA-Public Use
  Company Number: DK-Accord-310187

PATIENT
  Age: 15 Year
  Sex: Female
  Weight: 28.8 kg

DRUGS (3)
  1. TACROLIMUS [Suspect]
     Active Substance: TACROLIMUS
     Indication: Immunosuppressant drug therapy
     Dosage: 0.25 MG/KG DIVIDED 2/DAY,?BLOOD TACROLIMUS WAS REDUCED TO 3-5 UG/L AFTER 2 MONTH
  2. ASPIRIN [Concomitant]
     Active Substance: ASPIRIN
     Indication: Antiplatelet therapy
  3. TACROLIMUS [Suspect]
     Active Substance: TACROLIMUS
     Indication: Immunosuppressant drug therapy
     Dosage: REDUCTION IN BLOOD TACROLIMUS LEVELS WAS ACCELERATED TOWARD 3-5 UG/L AFTER THE FIRST 2 MONTHS

REACTIONS (8)
  - Coordination abnormal [Recovered/Resolved]
  - Aphasia [Recovered/Resolved]
  - Dysphagia [Recovered/Resolved]
  - Diplopia [Recovered/Resolved]
  - Cerebral vasoconstriction [Recovered/Resolved]
  - Cerebral ischaemia [Recovered/Resolved]
  - Ataxia [Recovered/Resolved]
  - Balance disorder [Recovered/Resolved]
